FAERS Safety Report 9850791 (Version 1)
Quarter: 2014Q1

REPORT INFORMATION
  Report Type: Spontaneous
  Country: DE (occurrence: DE)
  Receive Date: 20140128
  Receipt Date: 20140128
  Transmission Date: 20141002
  Serious: Yes (Other)
  Sender: FDA-Public Use
  Company Number: DE-TEVA-458490GER

PATIENT
  Sex: Female

DRUGS (1)
  1. CLONIDIN-RATIOPHARM 150 MCG TABLETTEN [Suspect]
     Route: 048

REACTIONS (1)
  - Polyneuropathy [Not Recovered/Not Resolved]
